FAERS Safety Report 5312416-X (Version None)
Quarter: 2007Q2

REPORT INFORMATION
  Report Type: 
  Country: None (occurrence: None)
  Receive Date: 20070430
  Receipt Date: 20061016
  Transmission Date: 20071010
  Serious: No
  Sender: FDA-Public Use
  Company Number: 2006UW19990

PATIENT
  Age: 77 Year
  Sex: Male
  Weight: 65.3 kg

DRUGS (1)
  1. NEXIUM [Suspect]
     Indication: GASTROOESOPHAGEAL REFLUX DISEASE
     Route: 048
     Dates: start: 20060901

REACTIONS (5)
  - BRADYPHRENIA [None]
  - DRUG INEFFECTIVE [None]
  - DRY THROAT [None]
  - DYSPHONIA [None]
  - PSYCHOMOTOR HYPERACTIVITY [None]
